FAERS Safety Report 9442475 (Version 4)
Quarter: 2013Q4

REPORT INFORMATION
  Report Type: Spontaneous
  Country: SE (occurrence: SE)
  Receive Date: 20130806
  Receipt Date: 20131004
  Transmission Date: 20140711
  Serious: Yes (Hospitalization)
  Sender: FDA-Public Use
  Company Number: SE-009507513-1307SWE016888

PATIENT
  Age: 50 Year
  Sex: Female

DRUGS (4)
  1. LOSARTAN POTASSIUM (+) HYDROCHLOROTHIAZIDE [Suspect]
     Dosage: UNKNOWN DOSE
     Route: 048
     Dates: start: 20130520, end: 20130521
  2. ENALAPRIL STADA [Suspect]
  3. ENALAPRIL RATIOPHARM [Suspect]
     Dosage: UNK
     Dates: start: 20130520
  4. SIMVASTATIN ARROW [Concomitant]
     Route: 048

REACTIONS (3)
  - Electrocardiogram ST segment depression [Recovered/Resolved]
  - Hypokalaemia [Recovered/Resolved]
  - Chest pain [Unknown]
